FAERS Safety Report 16233780 (Version 1)
Quarter: 2019Q2

REPORT INFORMATION
  Report Type: Spontaneous
  Country: US (occurrence: US)
  Receive Date: 20190423
  Receipt Date: 20190423
  Transmission Date: 20190711
  Serious: Yes (Disabling, Other)
  Sender: FDA-Public Use
  Company Number: None

PATIENT
  Age: 63 Year
  Sex: Female
  Weight: 104.4 kg

DRUGS (14)
  1. IODINE. [Concomitant]
     Active Substance: IODINE
  2. BABY ASPIRIN [Concomitant]
     Active Substance: ASPIRIN
  3. SYNJARDY XR [Suspect]
     Active Substance: EMPAGLIFLOZIN\METFORMIN HYDROCHLORIDE
     Indication: TYPE 2 DIABETES MELLITUS
     Dosage: ?          QUANTITY:1 TABLET(S);?
     Route: 048
     Dates: start: 20190305, end: 20190403
  4. LIQUID KELP [Concomitant]
  5. WELLBUTRIN [Concomitant]
     Active Substance: BUPROPION HYDROCHLORIDE
  6. THYROID MEDICINE [Concomitant]
     Active Substance: UNSPECIFIED INGREDIENT
  7. VALTRES/VALACYCLOVIR HCL [Concomitant]
  8. VITAMIN C [Concomitant]
     Active Substance: ASCORBIC ACID
  9. COMPLEX B WITH B12 [Concomitant]
  10. GARLIC OIL [Concomitant]
     Active Substance: GARLIC OIL
  11. IBUPROFEN. [Concomitant]
     Active Substance: IBUPROFEN
  12. ATORVASTAIN [Concomitant]
     Active Substance: ATORVASTATIN
  13. COQ/10 [Concomitant]
  14. MONISTAT [Concomitant]
     Active Substance: MICONAZOLE NITRATE

REACTIONS (5)
  - Drug ineffective [None]
  - Fungal infection [None]
  - Pruritus [None]
  - Insomnia [None]
  - Burning sensation [None]

NARRATIVE: CASE EVENT DATE: 20190403
